FAERS Safety Report 9954376 (Version 1)
Quarter: 2014Q1

REPORT INFORMATION
  Report Type: Spontaneous
  Country: US (occurrence: US)
  Receive Date: 20140304
  Receipt Date: 20140304
  Transmission Date: 20141002
  Serious: Yes (Other)
  Sender: FDA-Public Use
  Company Number: US-TEVA-466100USA

PATIENT
  Age: 25 Year
  Sex: Female
  Weight: 69.01 kg

DRUGS (1)
  1. PARAGARD 380A [Suspect]
     Indication: CONTRACEPTION
     Route: 015

REACTIONS (3)
  - Embedded device [Unknown]
  - Device breakage [Unknown]
  - Medical device complication [Unknown]
